FAERS Safety Report 22655600 (Version 1)
Quarter: 2023Q2

REPORT INFORMATION
  Report Type: Spontaneous
  Country: US (occurrence: None)
  Receive Date: 20230629
  Receipt Date: 20230629
  Transmission Date: 20230722
  Serious: Yes (Hospitalization, Disabling, Other)
  Sender: FDA-Public Use
  Company Number: None

PATIENT
  Age: 57 Year
  Sex: Female
  Weight: 58.5 kg

DRUGS (1)
  1. XELJANZ [Suspect]
     Active Substance: TOFACITINIB CITRATE
     Indication: Product used for unknown indication
     Dosage: FREQUENCY : TWICE A DAY;?
     Dates: start: 20210209, end: 20210301

REACTIONS (7)
  - Herpes zoster [None]
  - Therapy interrupted [None]
  - Pulmonary embolism [None]
  - Deep vein thrombosis [None]
  - Contraindicated product administered [None]
  - Colectomy [None]
  - Therapy change [None]

NARRATIVE: CASE EVENT DATE: 20210307
